FAERS Safety Report 5471126-9 (Version None)
Quarter: 2007Q3

REPORT INFORMATION
  Report Type: 
  Country: None (occurrence: None)
  Receive Date: 20070928
  Receipt Date: 20070926
  Transmission Date: 20080115
  Serious: Yes (Death)
  Sender: FDA-Public Use
  Company Number: US-ASTRAZENECA-2006UW21623

PATIENT
  Sex: Male
  Weight: 125 kg

DRUGS (1)
  1. SEROQUEL [Suspect]
     Route: 048
     Dates: start: 20050601, end: 20051121

REACTIONS (3)
  - CARDIOVASCULAR DISORDER [None]
  - HYPERGLYCAEMIA [None]
  - HYPERTENSION [None]
